FAERS Safety Report 8911291 (Version 2)
Quarter: 2013Q4

REPORT INFORMATION
  Report Type: Spontaneous
  Country: US (occurrence: US)
  Receive Date: 20121116
  Receipt Date: 20131217
  Transmission Date: 20140711
  Serious: No
  Sender: FDA-Public Use
  Company Number: US-GLAXOSMITHKLINE-A0995353A

PATIENT
  Age: 60 Year
  Sex: Female

DRUGS (5)
  1. VOTRIENT [Suspect]
     Indication: RENAL CANCER
     Dosage: 600MG PER DAY
     Route: 065
     Dates: start: 20120904
  2. APAP [Suspect]
     Indication: BACK PAIN
     Route: 065
  3. HCTZ [Concomitant]
  4. AMLODIPINE [Concomitant]
  5. NYSTATIN POWDER [Concomitant]

REACTIONS (12)
  - Emotional disorder [Recovering/Resolving]
  - Headache [Unknown]
  - Fatigue [Unknown]
  - Diarrhoea [Unknown]
  - Pain [Unknown]
  - Heart rate increased [Unknown]
  - Hair colour changes [Unknown]
  - Hepatic enzyme increased [Recovered/Resolved]
  - Back pain [Unknown]
  - Aspartate aminotransferase increased [Unknown]
  - Alanine aminotransferase increased [Unknown]
  - Arthralgia [Unknown]
